FAERS Safety Report 4668560-3 (Version None)
Quarter: 2005Q2

REPORT INFORMATION
  Report Type: 
  Country: None (occurrence: None)
  Receive Date: 20050518
  Receipt Date: 20050427
  Transmission Date: 20051028
  Serious: No
  Sender: FDA-Public Use
  Company Number: B0376131A

PATIENT
  Age: 58 Year
  Sex: Male

DRUGS (5)
  1. LAMICTAL [Suspect]
     Indication: BIPOLAR DISORDER
     Dates: start: 20040517
  2. LITHIUM CARBONATE [Concomitant]
  3. THYROXINE SODIUM [Concomitant]
  4. OLANZAPINE [Concomitant]
  5. LORAZEPAM [Concomitant]

REACTIONS (2)
  - ARRHYTHMIA [None]
  - STRESS [None]
